FAERS Safety Report 8572025-6 (Version None)
Quarter: 2012Q2

REPORT INFORMATION
  Report Type: 
  Country: None (occurrence: None)
  Receive Date: 20120418
  Receipt Date: 20100617
  Transmission Date: 20120825
  Serious: Yes (Other)
  Sender: FDA-Public Use
  Company Number: PHHY2010US37580

PATIENT
  Age: 56 Year
  Sex: Female

DRUGS (3)
  1. TEKTURNA [Suspect]
     Dosage: 150 MG
  2. NORVASC [Concomitant]
  3. DIOVAN HCT [Suspect]
     Dosage: 160/25

REACTIONS (1)
  - HYPOTENSION [None]
